FAERS Safety Report 6925545-1 (Version None)
Quarter: 2010Q3

REPORT INFORMATION
  Report Type: 
  Country: None (occurrence: None)
  Receive Date: 20100816
  Receipt Date: 20100809
  Transmission Date: 20110219
  Serious: Yes (Hospitalization)
  Sender: FDA-Public Use
  Company Number: DE-ROCHE-720255

PATIENT
  Sex: Female

DRUGS (4)
  1. TRASTUZUMAB [Suspect]
     Indication: BREAST CANCER
     Dosage: LOADING DOSE, PLANNED TO RESTART ON 05 AUGUST 2010.
     Route: 042
     Dates: start: 20100617
  2. TRASTUZUMAB [Suspect]
     Dosage: INTRRUPTED. PLANNED TO RESTART ON 05 AUGUST 2010.
     Route: 042
     Dates: start: 20100717
  3. LAPATINIB [Suspect]
     Indication: BREAST CANCER
     Dosage: INTRRUPTED. PLANNED TO RESTART ON 05 AUGUST 2010.
     Route: 048
     Dates: start: 20100617
  4. PACLITAXEL [Suspect]
     Indication: BREAST CANCER
     Dosage: INTRRUPTED. PLANNED TO RESTART ON 05 AUGUST 2010.
     Route: 042
     Dates: start: 20100617

REACTIONS (1)
  - CIRCULATORY COLLAPSE [None]
